FAERS Safety Report 4436022-4 (Version None)
Quarter: 2004Q3

REPORT INFORMATION
  Report Type: 
  Country: None (occurrence: None)
  Receive Date: 20040726
  Receipt Date: 20040428
  Transmission Date: 20050211
  Serious: No
  Sender: FDA-Public Use
  Company Number: USA040466126

PATIENT
  Age: 55 Year
  Sex: Female
  Weight: 66 kg

DRUGS (5)
  1. FORTEO [Suspect]
     Indication: OSTEOPOROSIS
     Dosage: 20 UG/1 DAY
     Dates: start: 20040201
  2. ACIPHEX [Concomitant]
  3. FEMHRT [Concomitant]
  4. ELMIRON [Concomitant]
  5. SUDAFED (PESUDOEPHEDRINE HYDROCHLORIDE) [Concomitant]

REACTIONS (3)
  - RASH PRURITIC [None]
  - SINUS CONGESTION [None]
  - SINUSITIS [None]
